FAERS Safety Report 25474599 (Version 2)
Quarter: 2025Q3

REPORT INFORMATION
  Report Type: Spontaneous
  Country: US (occurrence: US)
  Receive Date: 20250624
  Receipt Date: 20250707
  Transmission Date: 20251020
  Serious: No
  Sender: SANOFI AVENTIS
  Company Number: US-SA-2025SA176016

PATIENT
  Age: 12 Year
  Sex: Female
  Weight: 40.36 kg

DRUGS (8)
  1. NEXVIAZYME [Suspect]
     Active Substance: AVALGLUCOSIDASE ALFA-NGPT
     Indication: Glycogen storage disease type II
     Dosage: 800 MG, QOW
     Route: 042
     Dates: start: 20250226
  2. GEBAUER^S PAIN EASE [Concomitant]
  3. SODIUM CHLORIDE [Concomitant]
     Active Substance: SODIUM CHLORIDE
  4. LIDOCAINE\PRILOCAINE [Concomitant]
     Active Substance: LIDOCAINE\PRILOCAINE
  5. DIPHENHYDRAMINE [Concomitant]
     Active Substance: DIPHENHYDRAMINE
  6. DEXTROSE [Concomitant]
     Active Substance: DEXTROSE MONOHYDRATE
  7. DEXTROSE [Concomitant]
     Active Substance: DEXTROSE MONOHYDRATE
  8. EPINEPHRINE [Concomitant]
     Active Substance: EPINEPHRINE

REACTIONS (7)
  - Constipation [Unknown]
  - Initial insomnia [Unknown]
  - Respiratory tract congestion [Unknown]
  - Weight increased [Unknown]
  - Diarrhoea [Unknown]
  - Fatigue [Unknown]
  - Oropharyngeal pain [Unknown]
